FAERS Safety Report 11503442 (Version 2)
Quarter: 2016Q3

REPORT INFORMATION
  Report Type: Spontaneous
  Country: US (occurrence: US)
  Receive Date: 20150914
  Receipt Date: 20160915
  Transmission Date: 20161109
  Serious: No
  Sender: FDA-Public Use
  Company Number: US-ASTELLAS-2015US025076

PATIENT
  Age: 75 Year
  Sex: Male

DRUGS (6)
  1. XTANDI [Suspect]
     Active Substance: ENZALUTAMIDE
     Indication: PROSTATE CANCER
     Route: 048
  2. XTANDI [Suspect]
     Active Substance: ENZALUTAMIDE
     Indication: METASTASES TO BONE
     Dosage: UNK UNK, UNKNOWN FREQ.
     Route: 048
  3. XTANDI [Suspect]
     Active Substance: ENZALUTAMIDE
     Route: 065
  4. XTANDI [Suspect]
     Active Substance: ENZALUTAMIDE
     Route: 048
  5. XTANDI [Suspect]
     Active Substance: ENZALUTAMIDE
     Dosage: 80 MG (2 DF), TWICE DAILY
     Route: 065
     Dates: start: 201507
  6. XTANDI [Suspect]
     Active Substance: ENZALUTAMIDE
     Dosage: 40 MG (1 DF), TWICE DAILY
     Route: 065
     Dates: start: 20150526

REACTIONS (8)
  - Fatigue [Recovered/Resolved]
  - Inappropriate schedule of drug administration [Unknown]
  - Drug dose omission [Unknown]
  - Balance disorder [Recovered/Resolved]
  - Vision blurred [Recovered/Resolved]
  - Drug intolerance [Recovered/Resolved]
  - Dizziness [Recovered/Resolved]
  - Fatigue [Unknown]

NARRATIVE: CASE EVENT DATE: 201503
